FAERS Safety Report 10928308 (Version 1)
Quarter: 2015Q1

REPORT INFORMATION
  Report Type: Spontaneous
  Country: US (occurrence: None)
  Receive Date: 20150317
  Receipt Date: 20150317
  Transmission Date: 20150721
  Serious: No
  Sender: FDA-Public Use
  Company Number: None

PATIENT
  Age: 58 Year
  Sex: Female
  Weight: 53.52 kg

DRUGS (2)
  1. VIVELLE [Suspect]
     Active Substance: ESTRADIOL
     Indication: HORMONE REPLACEMENT THERAPY
     Dosage: APPLIED AS MEDICATED PATCH TO SKIN
     Route: 061
     Dates: start: 20150309, end: 20150316
  2. PROGESTERONE. [Concomitant]
     Active Substance: PROGESTERONE

REACTIONS (2)
  - Product adhesion issue [None]
  - Incorrect dose administered [None]

NARRATIVE: CASE EVENT DATE: 20150309
